FAERS Safety Report 18087042 (Version 1)
Quarter: 2020Q3

REPORT INFORMATION
  Report Type: Report from Study
  Country: IN (occurrence: IN)
  Receive Date: 20200729
  Receipt Date: 20200729
  Transmission Date: 20201103
  Serious: Yes (Hospitalization)
  Sender: FDA-Public Use
  Company Number: IN-EISAI MEDICAL RESEARCH-EC-2020-078042

PATIENT
  Age: 69 Year
  Sex: Male

DRUGS (1)
  1. LENVIMA [Suspect]
     Active Substance: LENVATINIB
     Indication: THYROID CANCER
     Route: 048
     Dates: start: 201902, end: 202007

REACTIONS (3)
  - Gastrointestinal perforation [Unknown]
  - Pain [Unknown]
  - Fluid overload [Unknown]

NARRATIVE: CASE EVENT DATE: 202007
